FAERS Safety Report 9341290 (Version 1)
Quarter: 2013Q2

REPORT INFORMATION
  Report Type: Spontaneous
  Country: US (occurrence: None)
  Receive Date: 20130610
  Receipt Date: 20130610
  Transmission Date: 20140414
  Serious: No
  Sender: FDA-Public Use
  Company Number: None

PATIENT
  Age: 35 Year
  Sex: Male
  Weight: 90.72 kg

DRUGS (5)
  1. NORTRIPTYLINE [Suspect]
     Indication: TENSION
     Dosage: 3 CAPSULES (30 MG)  AT BEDTIME  BY MOUTH
     Route: 048
     Dates: start: 20130603, end: 20130606
  2. NORTRIPTYLINE [Suspect]
     Indication: MIGRAINE
     Dosage: 3 CAPSULES (30 MG)  AT BEDTIME  BY MOUTH
     Route: 048
     Dates: start: 20130603, end: 20130606
  3. ZYRTEC [Concomitant]
  4. CPAP MACHINE [Concomitant]
  5. OMEGA-3 FISH OIL [Concomitant]

REACTIONS (3)
  - Headache [None]
  - Product substitution issue [None]
  - Product quality issue [None]
